FAERS Safety Report 19285937 (Version 1)
Quarter: 2021Q2

REPORT INFORMATION
  Report Type: Spontaneous
  Country: FR (occurrence: FR)
  Receive Date: 20210521
  Receipt Date: 20210521
  Transmission Date: 20210717
  Serious: Yes (Other)
  Sender: FDA-Public Use
  Company Number: NVSC2021FR094921

PATIENT
  Age: 81 Year
  Sex: Female
  Weight: 80 kg

DRUGS (3)
  1. COUMADINE [Suspect]
     Active Substance: WARFARIN SODIUM
     Indication: PRODUCT USED FOR UNKNOWN INDICATION
     Dosage: 6 MG, QD
     Route: 065
  2. GLICLAZIDE [Suspect]
     Active Substance: GLICLAZIDE
     Indication: PRODUCT USED FOR UNKNOWN INDICATION
     Dosage: 160 MG, QD
     Route: 065
  3. METFORMIN [Suspect]
     Active Substance: METFORMIN HYDROCHLORIDE
     Indication: PRODUCT USED FOR UNKNOWN INDICATION
     Dosage: UNK
     Route: 065

REACTIONS (11)
  - Malaise [Unknown]
  - C-reactive protein increased [Unknown]
  - International normalised ratio fluctuation [Unknown]
  - Hypoalbuminaemia [Unknown]
  - Pyrexia [Unknown]
  - Urinary tract infection [Unknown]
  - Decreased appetite [Unknown]
  - International normalised ratio abnormal [Unknown]
  - Weight decreased [Unknown]
  - Hypoglycaemia [Unknown]
  - Creatinine renal clearance decreased [Unknown]
